FAERS Safety Report 9621343 (Version 1)
Quarter: 2013Q4

REPORT INFORMATION
  Report Type: Spontaneous
  Country: CA (occurrence: CA)
  Receive Date: 20131015
  Receipt Date: 20131015
  Transmission Date: 20140711
  Serious: Yes (Other)
  Sender: FDA-Public Use
  Company Number: CA-UCBSA-100229

PATIENT
  Age: 52 Year
  Sex: Male

DRUGS (3)
  1. LEVETIRACETAM [Suspect]
     Indication: CONVULSION
     Dosage: UNKNOWN DOSE
     Dates: end: 20120203
  2. VALPROIC ACID [Suspect]
     Indication: CONVULSION
  3. CLOBAZAM [Suspect]
     Indication: CONVULSION
     Dates: end: 20120203

REACTIONS (5)
  - Depressed level of consciousness [Recovering/Resolving]
  - Somnolence [Unknown]
  - Myoclonus [Recovering/Resolving]
  - Coordination abnormal [Unknown]
  - Dysarthria [Unknown]
